FAERS Safety Report 25554233 (Version 1)
Quarter: 2025Q3

REPORT INFORMATION
  Report Type: Spontaneous
  Country: EU (occurrence: EU)
  Receive Date: 20250715
  Receipt Date: 20250715
  Transmission Date: 20251020
  Serious: Yes (Hospitalization, Other)
  Sender: PFIZER
  Company Number: EU-PFIZER INC-PV202500083261

PATIENT
  Age: 79 Year
  Sex: Male

DRUGS (4)
  1. VYNDAQEL [Interacting]
     Active Substance: TAFAMIDIS MEGLUMINE
     Indication: Amyloidosis
     Dosage: 20 MG, 1X/DAY
     Route: 048
  2. ROSUVASTATIN [Interacting]
     Active Substance: ROSUVASTATIN
     Indication: Coronary artery disease
  3. ASPIRIN [Concomitant]
     Active Substance: ASPIRIN
  4. PLAVIX [Concomitant]
     Active Substance: CLOPIDOGREL BISULFATE

REACTIONS (2)
  - Labelled drug-drug interaction issue [Recovered/Resolved]
  - Rhabdomyolysis [Recovered/Resolved]
